FAERS Safety Report 4312100-5 (Version None)
Quarter: 2004Q1

REPORT INFORMATION
  Report Type: 
  Country: None (occurrence: None)
  Receive Date: 20040303
  Receipt Date: 20040219
  Transmission Date: 20041129
  Serious: Yes (Hospitalization)
  Sender: FDA-Public Use
  Company Number: AU-JNJFOC-20040201535

PATIENT
  Age: 61 Year
  Sex: Female
  Weight: 50 kg

DRUGS (7)
  1. REMICADE [Suspect]
     Indication: RHEUMATOID ARTHRITIS
     Dosage: 3 MG/KG, 1 IN 8 WEEK, INTRAVENOUS BOLUS
     Route: 040
     Dates: start: 20030103, end: 20040203
  2. FOLIC ACID [Concomitant]
  3. METHOTREXATE [Concomitant]
  4. CELEBREX [Concomitant]
  5. CALCITRIOL [Concomitant]
  6. PREDNISOLONE [Concomitant]
  7. BONEFOS (CLODRONATE DISODIUM) [Concomitant]

REACTIONS (2)
  - CHILLS [None]
  - PYREXIA [None]
